FAERS Safety Report 10443765 (Version 2)
Quarter: 2014Q3

REPORT INFORMATION
  Report Type: Spontaneous
  Country: US (occurrence: US)
  Receive Date: 20140910
  Receipt Date: 20140910
  Transmission Date: 20150326
  Serious: No
  Sender: FDA-Public Use
  Company Number: US-TEVA-486660USA

PATIENT
  Sex: Male

DRUGS (1)
  1. IRBESARTAN. [Suspect]
     Active Substance: IRBESARTAN
     Indication: BLOOD PRESSURE

REACTIONS (3)
  - Panic reaction [Unknown]
  - Blood pressure increased [Unknown]
  - Chest discomfort [Unknown]
